FAERS Safety Report 4768977-2 (Version None)
Quarter: 2005Q3

REPORT INFORMATION
  Report Type: 
  Country: None (occurrence: None)
  Receive Date: 20050914
  Receipt Date: 20050905
  Transmission Date: 20060218
  Serious: Yes (Hospitalization)
  Sender: FDA-Public Use
  Company Number: 200512753GDS

PATIENT
  Age: 74 Year
  Sex: Male
  Weight: 71 kg

DRUGS (2)
  1. ASPIRIN [Suspect]
     Indication: ATRIAL FIBRILLATION
     Dosage: 100 MG, TOTAL DAILY, ORAL
     Route: 048
     Dates: start: 19970101
  2. ASPIRIN [Suspect]
     Indication: HYPERTENSION
     Dosage: 100 MG, TOTAL DAILY, ORAL
     Route: 048
     Dates: start: 19970101

REACTIONS (12)
  - ABDOMINAL MASS [None]
  - ASCITES [None]
  - BLOOD ALBUMIN DECREASED [None]
  - C-REACTIVE PROTEIN INCREASED [None]
  - COLON NEOPLASM [None]
  - FLATULENCE [None]
  - GASTROINTESTINAL HYPOMOTILITY [None]
  - GASTROINTESTINAL PERFORATION [None]
  - HAEMATOMA [None]
  - INTRA-ABDOMINAL HAEMORRHAGE [None]
  - PROTEIN TOTAL DECREASED [None]
  - PROTHROMBIN TIME PROLONGED [None]
